FAERS Safety Report 10464361 (Version 1)
Quarter: 2014Q3

REPORT INFORMATION
  Report Type: Spontaneous
  Country: FR (occurrence: FR)
  Receive Date: 20140919
  Receipt Date: 20140919
  Transmission Date: 20150326
  Serious: Yes (Other)
  Sender: FDA-Public Use
  Company Number: FR-ABBVIE-14P-056-1282992-00

PATIENT
  Age: 34 Year
  Sex: Male

DRUGS (4)
  1. KALETRA [Suspect]
     Active Substance: LOPINAVIR\RITONAVIR
     Indication: PROPHYLAXIS AGAINST HIV INFECTION
  2. TRUVADA [Suspect]
     Active Substance: EMTRICITABINE\TENOFOVIR DISOPROXIL FUMARATE
     Indication: HIV INFECTION
     Dates: start: 20140814, end: 20140818
  3. KALETRA [Suspect]
     Active Substance: LOPINAVIR\RITONAVIR
     Indication: HIV INFECTION
     Route: 048
     Dates: start: 20140814, end: 20140818
  4. TRUVADA [Suspect]
     Active Substance: EMTRICITABINE\TENOFOVIR DISOPROXIL FUMARATE
     Indication: PROPHYLAXIS AGAINST HIV INFECTION

REACTIONS (3)
  - Transaminases increased [Recovered/Resolved]
  - Blood bilirubin unconjugated increased [Recovered/Resolved]
  - Jaundice [Recovered/Resolved]

NARRATIVE: CASE EVENT DATE: 20140816
